FAERS Safety Report 15023531 (Version 1)
Quarter: 2018Q2

REPORT INFORMATION
  Report Type: Spontaneous
  Country: ES (occurrence: ES)
  Receive Date: 20180618
  Receipt Date: 20180618
  Transmission Date: 20180711
  Serious: Yes (Other)
  Sender: FDA-Public Use
  Company Number: PHHY2018ES024547

PATIENT
  Age: 3 Year
  Sex: Male

DRUGS (9)
  1. SEPTRIN PAEDIATRIC [Concomitant]
     Active Substance: SULFAMETHOXAZOLE\TRIMETHOPRIM
     Indication: OPPORTUNISTIC INFECTION PROPHYLAXIS
     Dosage: 4 UG, Q12H (8 MG/40 MG/ML SUSPENSION, 1 FRASCO DE 100 ML)
     Route: 048
     Dates: start: 20170307
  2. VINDESINE SULFATE [Suspect]
     Active Substance: VINDESINE SULFATE
     Indication: ACUTE LYMPHOCYTIC LEUKAEMIA
     Dosage: 1.6 MG, QW
     Route: 042
     Dates: start: 20170920, end: 20170925
  3. DAUNORUBICIN HYDROCHLORIDE. [Suspect]
     Active Substance: DAUNORUBICIN HYDROCHLORIDE
     Indication: ACUTE LYMPHOCYTIC LEUKAEMIA
     Dosage: 6.2 MG, QD
     Route: 042
     Dates: start: 20170924, end: 20170924
  4. METHOTREXATE. [Suspect]
     Active Substance: METHOTREXATE
     Indication: ACUTE LYMPHOCYTIC LEUKAEMIA
     Dosage: 2435 MG, UNK
     Route: 042
  5. ONCASPAR [Suspect]
     Active Substance: PEGASPARGASE
     Indication: ACUTE LYMPHOCYTIC LEUKAEMIA
     Dosage: 541.66 IU, QD (OLUCION INYECTABLE Y PARA PERFUSI?N, 1 VIAL DE 5 ML)
     Route: 030
     Dates: start: 20170926, end: 20170926
  6. IFOSFAMIDE. [Suspect]
     Active Substance: IFOSFAMIDE
     Indication: ACUTE LYMPHOCYTIC LEUKAEMIA
     Dosage: 2165 MG, Q72H
     Route: 042
     Dates: start: 20170920, end: 20170923
  7. MESNA. [Concomitant]
     Active Substance: MESNA
     Indication: PROPHYLAXIS
     Dosage: 2437.5 MG, Q72H
     Route: 042
     Dates: start: 20170920, end: 20170923
  8. DEXAMETHASONE. [Suspect]
     Active Substance: DEXAMETHASONE
     Indication: ACUTE LYMPHOCYTIC LEUKAEMIA
     Dosage: 5.4 MG, Q12H
     Route: 042
     Dates: start: 20170920, end: 20170925
  9. ZOVIRAX [Concomitant]
     Active Substance: ACYCLOVIR
     Indication: OPPORTUNISTIC INFECTION PROPHYLAXIS
     Dosage: 120 UG/KG, Q8H (1 FRASCO DE 200 ML)
     Route: 048
     Dates: start: 20170307

REACTIONS (1)
  - Respiratory tract infection [Recovered/Resolved]

NARRATIVE: CASE EVENT DATE: 20171006
